FAERS Safety Report 20762193 (Version 2)
Quarter: 2022Q3

REPORT INFORMATION
  Report Type: Spontaneous
  Country: US (occurrence: None)
  Receive Date: 20220428
  Receipt Date: 20220721
  Transmission Date: 20221026
  Serious: Yes (Other)
  Sender: FDA-Public Use
  Company Number: US-ROCHE-3050181

PATIENT
  Age: 76 Year
  Sex: Male
  Weight: 63.560 kg

DRUGS (2)
  1. XELODA [Suspect]
     Active Substance: CAPECITABINE
     Indication: Colorectal cancer
     Dosage: TWICE DAILY
     Route: 048
     Dates: start: 20220301
  2. OXALIPLATIN [Concomitant]
     Active Substance: OXALIPLATIN
     Indication: Colorectal cancer
     Dosage: INFUSION LASTED 2 HOURS
     Route: 042
     Dates: start: 20220301

REACTIONS (7)
  - Abnormal faeces [Not Recovered/Not Resolved]
  - Headache [Recovered/Resolved]
  - Trismus [Recovered/Resolved]
  - Pain in jaw [Recovered/Resolved]
  - Asthenia [Not Recovered/Not Resolved]
  - Abdominal pain [Not Recovered/Not Resolved]
  - Crohn^s disease [Not Recovered/Not Resolved]

NARRATIVE: CASE EVENT DATE: 20220301
